FAERS Safety Report 5715382-8 (Version None)
Quarter: 2008Q2

REPORT INFORMATION
  Report Type: 
  Country: None (occurrence: None)
  Receive Date: 20080423
  Receipt Date: 20080410
  Transmission Date: 20081010
  Serious: Yes (Death, Life-Threatening, Hospitalization)
  Sender: FDA-Public Use
  Company Number: BR-ABBOTT-08P-020-0444535-00

PATIENT
  Sex: Male

DRUGS (15)
  1. RITONAVIR SOFT GELATIN CAPSULES [Suspect]
     Indication: HIV INFECTION
     Route: 048
     Dates: start: 20070809
  2. RITONAVIR SOFT GELATIN CAPSULES [Suspect]
     Dates: start: 20070810
  3. TMC125 [Concomitant]
     Indication: HIV INFECTION
     Route: 048
     Dates: start: 20070809, end: 20070809
  4. PREZISTA [Concomitant]
     Indication: HIV INFECTION
     Route: 048
     Dates: start: 20070809
  5. PREZISTA [Concomitant]
     Dates: start: 20070810
  6. ENFUVIRTIDE [Concomitant]
     Indication: HIV INFECTION
  7. TENOFOVIR DISOPROXIL FUMARATE [Concomitant]
     Indication: HIV INFECTION
     Route: 048
  8. LAMIVUDINE + ZIDOVUDINE [Concomitant]
     Indication: HIV INFECTION
     Route: 048
     Dates: start: 20070809
  9. HYDROCHLOROTHIAZIDE [Concomitant]
     Indication: HYPERTENSION
     Route: 048
  10. PROPRANOLOL [Concomitant]
     Indication: HYPERTENSION
     Route: 048
     Dates: start: 20071012, end: 20071012
  11. CAPTOPRIL [Concomitant]
     Indication: HYPERTENSION
     Route: 048
     Dates: end: 20071012
  12. BACTRIM [Concomitant]
     Indication: DIARRHOEA
     Route: 048
     Dates: start: 20070809, end: 20071012
  13. NYSTATIN [Concomitant]
     Indication: ORAL CANDIDIASIS
     Route: 048
     Dates: end: 20071012
  14. LOPERAMIDE HCL [Concomitant]
     Indication: DIARRHOEA
     Route: 048
     Dates: end: 20071012
  15. METAMIZOLE SODIUM [Concomitant]
     Indication: DRUG USE FOR UNKNOWN INDICATION
     Route: 048
     Dates: start: 20070809

REACTIONS (3)
  - CARDIOPULMONARY FAILURE [None]
  - DEHYDRATION [None]
  - PNEUMOCYSTIS JIROVECI PNEUMONIA [None]
